FAERS Safety Report 6199827-8 (Version None)
Quarter: 2009Q2

REPORT INFORMATION
  Report Type: 
  Country: None (occurrence: None)
  Receive Date: 20090522
  Receipt Date: 20090514
  Transmission Date: 20091009
  Serious: Yes (Hospitalization, Other)
  Sender: FDA-Public Use
  Company Number: FI-JNJFOC-20090205328

PATIENT
  Age: 10 Year
  Sex: Male
  Weight: 39 kg

DRUGS (5)
  1. REMICADE [Suspect]
     Indication: UVEITIS
     Route: 042
  2. REMICADE [Suspect]
     Indication: IRITIS
     Dosage: INITIAL DOSE
     Route: 042
  3. ANTIRHEUMATIC [Concomitant]
  4. PREDNISOLONE [Concomitant]
     Dosage: EVERY OTHER DAY
     Route: 047
  5. SANDIMMUNE [Concomitant]

REACTIONS (1)
  - NEPHROTIC SYNDROME [None]
